FAERS Safety Report 7925177-2 (Version None)
Quarter: 2011Q4

REPORT INFORMATION
  Report Type: 
  Country: None (occurrence: None)
  Receive Date: 20111118
  Receipt Date: 20111116
  Transmission Date: 20120403
  Serious: Yes (Death)
  Sender: FDA-Public Use
  Company Number: ES-ROCHE-749924

PATIENT
  Sex: Male
  Weight: 71.6 kg

DRUGS (5)
  1. XELODA [Suspect]
     Indication: COLORECTAL CANCER
     Dosage: LAST DOSE PRIOR TO SAE:DEC 2010, PERMANENTLY DISCONTINUED
     Route: 048
     Dates: start: 20100614, end: 20101220
  2. OMEPRAZOLE [Concomitant]
  3. METAMIZOL [Concomitant]
     Dosage: TOTAL DAILY DOSE:PRN
  4. AVASTIN [Suspect]
     Indication: COLORECTAL CANCER
     Dosage: FREQUENCY REPORTED AS DAY1, LAST DOSE PRIOR TO SAE:14 DEC 2010, PERMANENTLY DISCONTINUED
     Route: 042
     Dates: start: 20100614, end: 20101220
  5. OXALIPLATIN [Suspect]
     Indication: COLORECTAL CANCER
     Dosage: FREQUENCY REPORTED AS DAY1, LAST DOSE PRIOR TO SAE:14 DEC 2010, PERMANENTLY DISCONTINUED
     Route: 042
     Dates: start: 20100614, end: 20101220

REACTIONS (2)
  - NEUTROPENIA [None]
  - LUNG INFECTION [None]
